FAERS Safety Report 11212599 (Version 2)
Quarter: 2015Q2

REPORT INFORMATION
  Report Type: Report from Study
  Country: US (occurrence: US)
  Receive Date: 20150623
  Receipt Date: 20150630
  Transmission Date: 20150821
  Serious: Yes (Hospitalization)
  Sender: FDA-Public Use
  Company Number: US-ACTELION-A-NJ2015-117360

PATIENT
  Age: 61 Year
  Sex: Female

DRUGS (5)
  1. VELETRI [Suspect]
     Active Substance: EPOPROSTENOL
     Dosage: 21 UNK, PER MIN
     Route: 042
     Dates: start: 20150601
  2. LETAIRIS [Concomitant]
     Active Substance: AMBRISENTAN
  3. VELETRI [Suspect]
     Active Substance: EPOPROSTENOL
     Indication: PULMONARY HYPERTENSION
     Dosage: 7 NG/KG, PER MIN
     Route: 042
     Dates: start: 20150417
  4. VELETRI [Suspect]
     Active Substance: EPOPROSTENOL
     Dosage: 11 NG/KG, PER MIN
     Route: 042
  5. VELETRI [Suspect]
     Active Substance: EPOPROSTENOL
     Dosage: 31 NG/KG, PER MIN
     Route: 042

REACTIONS (17)
  - Device breakage [Unknown]
  - Chills [Unknown]
  - Nausea [Unknown]
  - Motor dysfunction [Unknown]
  - Dyspnoea [Unknown]
  - Arthralgia [Unknown]
  - Pain [Unknown]
  - Device alarm issue [Unknown]
  - Pain in extremity [Unknown]
  - Chest pain [Unknown]
  - Diarrhoea [Unknown]
  - Asthenia [Unknown]
  - Hyperhidrosis [Unknown]
  - Bone pain [Unknown]
  - Infection [Unknown]
  - Flushing [Unknown]
  - Pain in jaw [Unknown]
